FAERS Safety Report 8317778 (Version 2)
Quarter: 2012Q4

REPORT INFORMATION
  Report Type: 
  Country: US (occurrence: US)
  Receive Date: 20120102
  Receipt Date: 20121029
  Transmission Date: 20130627
  Serious: Yes (Other)
  Sender: FDA-Public Use
  Company Number: US-ROCHE-791970

PATIENT
  Age: 20 None
  Sex: Female
  Weight: 61.29 kg

DRUGS (9)
  1. ACCUTANE [Suspect]
     Indication: ACNE
     Route: 048
     Dates: start: 200304, end: 20030917
  2. ACCUTANE [Suspect]
     Route: 048
  3. ACCUTANE [Suspect]
     Route: 048
  4. AMNESTEEM [Suspect]
     Indication: ACNE
     Route: 065
     Dates: start: 200412, end: 200502
  5. AMNESTEEM [Suspect]
     Route: 065
  6. SOTRET [Suspect]
     Indication: ACNE
     Route: 065
     Dates: start: 200708, end: 200711
  7. SOTRET [Suspect]
     Route: 065
     Dates: start: 20070820, end: 20080129
  8. AVIANE [Concomitant]
     Indication: PRODUCT USED FOR UNKNOWN INDICATION
  9. LEVAQUIN [Concomitant]
     Indication: PRODUCT USED FOR UNKNOWN INDICATION

REACTIONS (8)
  - Inflammatory bowel disease [Unknown]
  - Colitis ulcerative [Unknown]
  - Emotional distress [Unknown]
  - Haemorrhoids [Unknown]
  - Irritable bowel syndrome [Unknown]
  - Blood cholesterol increased [Unknown]
  - Blood triglycerides increased [Unknown]
  - Lip dry [Unknown]
